FAERS Safety Report 7137383-8 (Version None)
Quarter: 2010Q4

REPORT INFORMATION
  Report Type: 
  Country: None (occurrence: None)
  Receive Date: 20101206
  Receipt Date: 20101123
  Transmission Date: 20110411
  Serious: Yes (Hospitalization)
  Sender: FDA-Public Use
  Company Number: PHHY2010VE80208

PATIENT
  Sex: Female

DRUGS (5)
  1. ACLASTA [Suspect]
     Indication: OSTEOPOROSIS
     Dosage: 5 UNK
     Route: 042
     Dates: start: 20090301
  2. HUMIRA [Concomitant]
     Dosage: UNK
     Route: 058
     Dates: start: 20080101
  3. ARAVA [Concomitant]
     Dosage: UNK
     Route: 048
     Dates: start: 20080101
  4. CALCIUM [Concomitant]
  5. METHOTREXATE [Concomitant]
     Dosage: UNK
     Dates: end: 20100901

REACTIONS (2)
  - GASTRITIS [None]
  - KNEE ARTHROPLASTY [None]
